FAERS Safety Report 25163421 (Version 2)
Quarter: 2025Q2

REPORT INFORMATION
  Report Type: Report from Study
  Country: US (occurrence: US)
  Receive Date: 20250404
  Receipt Date: 20250507
  Transmission Date: 20250717
  Serious: Yes (Hospitalization, Other)
  Sender: ABBVIE
  Company Number: US-ABBVIE-6209354

PATIENT
  Sex: Male

DRUGS (2)
  1. IMBRUVICA [Suspect]
     Active Substance: IBRUTINIB
     Indication: Chronic lymphocytic leukaemia
     Dosage: THREE 140 MG CAPSULE ONCE DAILY
     Route: 048
     Dates: start: 20210308
  2. IMBRUVICA [Suspect]
     Active Substance: IBRUTINIB
     Indication: Chronic lymphocytic leukaemia
     Dosage: THREE 140 MG CAPSULE ONCE DAILY
     Route: 048
     Dates: start: 202208

REACTIONS (2)
  - Hernia [Unknown]
  - Cataract [Unknown]
